FAERS Safety Report 15211402 (Version 1)
Quarter: 2018Q3

REPORT INFORMATION
  Report Type: Spontaneous
  Country: US (occurrence: US)
  Receive Date: 20180701
  Receipt Date: 20180701
  Transmission Date: 20181010
  Serious: No
  Sender: FDA-Public Use
  Company Number: None

PATIENT
  Age: 70 Year
  Sex: Male

DRUGS (1)
  1. SIROLIMUS TAB [Suspect]
     Active Substance: SIROLIMUS
     Dates: start: 20180402, end: 20180701

REACTIONS (1)
  - Off label use [None]

NARRATIVE: CASE EVENT DATE: 20180701
